FAERS Safety Report 11315967 (Version 1)
Quarter: 2015Q3

REPORT INFORMATION
  Report Type: Spontaneous
  Country: US (occurrence: US)
  Receive Date: 20150728
  Receipt Date: 20150728
  Transmission Date: 20151125
  Serious: Yes (Other)
  Sender: FDA-Public Use
  Company Number: US-TEVA-580437USA

PATIENT
  Age: 56 Year
  Sex: Female

DRUGS (1)
  1. IRBESARTAN. [Suspect]
     Active Substance: IRBESARTAN
     Indication: HYPERTENSION
     Dosage: 150 MILLIGRAM DAILY;
     Route: 048
     Dates: start: 20131001, end: 20150413

REACTIONS (36)
  - Somnolence [Unknown]
  - Pulmonary congestion [Unknown]
  - Dyskinesia [Unknown]
  - Chills [Unknown]
  - Cough [Unknown]
  - Pruritus [Unknown]
  - Decreased appetite [Unknown]
  - Hyperhidrosis [Recovered/Resolved]
  - Cataract [Unknown]
  - Headache [Unknown]
  - Asthenia [Unknown]
  - Vision blurred [Unknown]
  - Dysuria [Unknown]
  - Formication [Unknown]
  - Dermatitis psoriasiform [Unknown]
  - Dysphonia [Unknown]
  - Fatigue [Unknown]
  - Pigmentation disorder [Unknown]
  - Product substitution issue [Unknown]
  - Rash [Recovered/Resolved]
  - Visual impairment [Unknown]
  - Hallucination, auditory [Unknown]
  - Erythema [Unknown]
  - Muscle spasms [Unknown]
  - Back pain [Unknown]
  - Hypoaesthesia [Unknown]
  - Drug ineffective [Unknown]
  - Skin disorder [Unknown]
  - Influenza like illness [Unknown]
  - Epistaxis [Unknown]
  - Pain [Unknown]
  - Dizziness [Unknown]
  - Urinary tract inflammation [Unknown]
  - Immune system disorder [Unknown]
  - Rash [Recovered/Resolved]
  - Vision blurred [Unknown]

NARRATIVE: CASE EVENT DATE: 201311
